FAERS Safety Report 8887077 (Version 1)
Quarter: 2012Q4

REPORT INFORMATION
  Report Type: 
  Country: US (occurrence: US)
  Receive Date: 20121105
  Receipt Date: 20121105
  Transmission Date: 20130627
  Serious: Yes (Other)
  Sender: FDA-Public Use
  Company Number: US-US-EMD SERONO, INC.-7171009

PATIENT
  Sex: Female
  Weight: 31 kg

DRUGS (1)
  1. SAIZEN [(SOMATROPIN (RDNA ORIGIN) FOR INJECTION)] [Suspect]
     Indication: DWARFISM
     Route: 058
     Dates: start: 20101208

REACTIONS (2)
  - Benign ovarian tumour [Unknown]
  - Ovarian cyst torsion [Unknown]
